FAERS Safety Report 11218608 (Version 11)
Quarter: 2017Q2

REPORT INFORMATION
  Report Type: Report from Study
  Country: HK (occurrence: HK)
  Receive Date: 20150625
  Receipt Date: 20170602
  Transmission Date: 20170829
  Serious: Yes (Hospitalization)
  Sender: FDA-Public Use
  Company Number: HK-PFIZER INC-2015202833

PATIENT
  Age: 56 Year
  Sex: Male
  Weight: 63 kg

DRUGS (4)
  1. CHLORHEXIDINE GLUCONATE. [Concomitant]
     Active Substance: CHLORHEXIDINE GLUCONATE
     Indication: MOUTH ULCERATION
     Dosage: 50 ML, DAILY (10 ML, 5 TIMES A DAY)
     Route: 002
     Dates: start: 20150402, end: 20150615
  2. ATENOLOL. [Suspect]
     Active Substance: ATENOLOL
     Indication: HYPERTENSION
     Dosage: 25 MG, 1X/DAY
     Route: 048
     Dates: start: 20150528, end: 20150617
  3. AXITINIB [Suspect]
     Active Substance: AXITINIB
     Dosage: 5 MG, BID (TWICE DAILY) CYCLIC
     Dates: start: 20150413, end: 20150613
  4. AXITINIB [Suspect]
     Active Substance: AXITINIB
     Indication: CLEAR CELL RENAL CELL CARCINOMA
     Dosage: 5 MG, BID (TWICE DAILY) CYCLIC
     Dates: start: 20150318, end: 20150613

REACTIONS (1)
  - Angina pectoris [Recovered/Resolved]

NARRATIVE: CASE EVENT DATE: 20150614
